FAERS Safety Report 22117973 (Version 1)
Quarter: 2023Q1

REPORT INFORMATION
  Report Type: Spontaneous
  Country: US (occurrence: None)
  Receive Date: 20230321
  Receipt Date: 20230321
  Transmission Date: 20230417
  Serious: No
  Sender: FDA-Public Use
  Company Number: US-ROCHE-3212225

PATIENT
  Sex: Female

DRUGS (4)
  1. VABYSMO [Suspect]
     Active Substance: FARICIMAB-SVOA
     Indication: Neovascular age-related macular degeneration
     Route: 031
  2. TYLENOL [Concomitant]
     Active Substance: ACETAMINOPHEN
  3. CORICIDIN (UNITED STATES) [Concomitant]
  4. DILAUDID [Concomitant]
     Active Substance: HYDROMORPHONE HYDROCHLORIDE

REACTIONS (3)
  - Visual impairment [Unknown]
  - Hypertension [Unknown]
  - Nasopharyngitis [Unknown]
